FAERS Safety Report 14015171 (Version 1)
Quarter: 2017Q3

REPORT INFORMATION
  Report Type: Spontaneous
  Country: DK (occurrence: DK)
  Receive Date: 20170927
  Receipt Date: 20170927
  Transmission Date: 20171128
  Serious: Yes (Hospitalization)
  Sender: FDA-Public Use
  Company Number: PHHY2017DK138954

PATIENT
  Age: 85 Year
  Sex: Female

DRUGS (5)
  1. FURIX [Concomitant]
     Active Substance: FUROSEMIDE
     Indication: DIURETIC THERAPY
     Dosage: 20 MG, QD
     Route: 048
     Dates: start: 20170116
  2. XARELTO [Concomitant]
     Active Substance: RIVAROXABAN
     Indication: THROMBOSIS PROPHYLAXIS
     Dosage: 20 MG, QD
     Route: 048
     Dates: start: 20150513
  3. ANCOZAN COMP [Suspect]
     Active Substance: HYDROCHLOROTHIAZIDE\LOSARTAN POTASSIUM
     Indication: HYPERTENSION
     Dosage: 1 DF, QD
     Route: 048
     Dates: start: 20131004, end: 20170907
  4. METOPROLOL. [Concomitant]
     Active Substance: METOPROLOL
     Indication: ARRHYTHMIA
     Dosage: 25 MG, QD
     Route: 048
     Dates: start: 20140926
  5. SIMVASTATIN. [Concomitant]
     Active Substance: SIMVASTATIN
     Indication: HYPERCHOLESTEROLAEMIA
     Dosage: 40 MG, QD
     Route: 048
     Dates: start: 20131014

REACTIONS (5)
  - Hyponatraemia [Recovering/Resolving]
  - Disorientation [Unknown]
  - Hallucination [Unknown]
  - Confusional state [Unknown]
  - Delirium [Unknown]

NARRATIVE: CASE EVENT DATE: 201709
